FAERS Safety Report 13942475 (Version 4)
Quarter: 2018Q1

REPORT INFORMATION
  Report Type: Spontaneous
  Country: GB (occurrence: GB)
  Receive Date: 20170906
  Receipt Date: 20180228
  Transmission Date: 20180508
  Serious: Yes (Hospitalization)
  Sender: FDA-Public Use
  Company Number: GB-BIOGEN-2017BI00454921

PATIENT
  Sex: Male

DRUGS (2)
  1. FAMPYRA [Suspect]
     Active Substance: DALFAMPRIDINE
     Indication: MULTIPLE SCLEROSIS
     Route: 048
     Dates: start: 20151016, end: 201708
  2. FAMPYRA [Suspect]
     Active Substance: DALFAMPRIDINE
     Route: 065
     Dates: start: 20170912

REACTIONS (2)
  - Urinary retention [Unknown]
  - Bladder irritation [Unknown]
